FAERS Safety Report 9499308 (Version 1)
Quarter: 2013Q3

REPORT INFORMATION
  Report Type: Spontaneous
  Country: US (occurrence: US)
  Receive Date: 20130905
  Receipt Date: 20130905
  Transmission Date: 20140515
  Serious: No
  Sender: FDA-Public Use
  Company Number: US-BIOGENIDEC-2013BI082200

PATIENT
  Age: 31 Year
  Sex: Female

DRUGS (2)
  1. TYSABRI [Suspect]
     Indication: MULTIPLE SCLEROSIS
     Route: 042
     Dates: start: 20130319
  2. BENADRYL [Concomitant]
     Indication: PREMEDICATION

REACTIONS (2)
  - Injection site urticaria [Not Recovered/Not Resolved]
  - Infusion site pruritus [Not Recovered/Not Resolved]
